FAERS Safety Report 5700096-0 (Version None)
Quarter: 2008Q2

REPORT INFORMATION
  Report Type: 
  Country: None (occurrence: None)
  Receive Date: 20080410
  Receipt Date: 20080331
  Transmission Date: 20081010
  Serious: Yes (Hospitalization)
  Sender: FDA-Public Use
  Company Number: US-JNJFOC-20071005069

PATIENT
  Sex: Female

DRUGS (12)
  1. TYLENOL SINUS CONGESTION AND PAIN DAYTIME [Suspect]
     Indication: NASOPHARYNGITIS
  2. VICKS DAYQUIL SINUS PRESSURE + PAIN RELIEF W/ IBUPROFEN [Suspect]
     Indication: NASOPHARYNGITIS
  3. NYQUIL [Suspect]
     Indication: NASOPHARYNGITIS
  4. TYLENOL (CAPLET) [Concomitant]
     Indication: HEADACHE
  5. 4% ROBITUSSIN WITH CODEINE [Concomitant]
     Indication: RESPIRATORY TRACT CONGESTION
  6. 4% ROBITUSSIN WITH CODEINE [Concomitant]
     Indication: COUGH
  7. MUCINEX [Concomitant]
     Indication: RESPIRATORY TRACT CONGESTION
  8. MUCINEX [Concomitant]
     Indication: COUGH
  9. COMBIVENT [Concomitant]
     Dosage: 2 PUFFS EVERY 4 HOURS
  10. HYDROCHLOROTHIAZIDE [Concomitant]
  11. PERCOCET [Concomitant]
  12. PREDNISONE [Concomitant]
     Indication: COUGH

REACTIONS (2)
  - CEREBRAL INFARCTION [None]
  - SUBARACHNOID HAEMORRHAGE [None]
